FAERS Safety Report 10631425 (Version 1)
Quarter: 2014Q4

REPORT INFORMATION
  Report Type: Spontaneous
  Country: US (occurrence: US)
  Receive Date: 20141205
  Receipt Date: 20141205
  Transmission Date: 20150529
  Serious: No
  Sender: FDA-Public Use
  Company Number: US-BRISTOL-MYERS SQUIBB COMPANY-21020045

PATIENT
  Age: 62 Year
  Sex: Male
  Weight: 92.97 kg

DRUGS (22)
  1. TIZANIDINE HCL [Concomitant]
     Active Substance: TIZANIDINE HYDROCHLORIDE
  2. ZOLPIDEM TARTRATE. [Concomitant]
     Active Substance: ZOLPIDEM TARTRATE
     Dosage: ER
  3. ABATACEPT SUBQ INJECTION 125MG/ML [Suspect]
     Active Substance: ABATACEPT
     Indication: RHEUMATOID ARTHRITIS
     Route: 058
     Dates: start: 20131226, end: 2014
  4. ALENDRONATE SODIUM. [Concomitant]
     Active Substance: ALENDRONATE SODIUM
  5. LISINOPRIL. [Concomitant]
     Active Substance: LISINOPRIL
  6. FLUCONAZOLE. [Concomitant]
     Active Substance: FLUCONAZOLE
  7. WARFARIN SODIUM. [Concomitant]
     Active Substance: WARFARIN SODIUM
  8. GABAPENTIN. [Concomitant]
     Active Substance: GABAPENTIN
  9. ASPIRIN. [Concomitant]
     Active Substance: ASPIRIN
     Dosage: EC 81 MG
  10. ABATACEPT SUBQ INJECTION 125MG/ML [Suspect]
     Active Substance: ABATACEPT
     Indication: OSTEOARTHRITIS
     Route: 058
     Dates: start: 20131226, end: 2014
  11. FUROSEMIDE. [Concomitant]
     Active Substance: FUROSEMIDE
  12. LORATADINE. [Concomitant]
     Active Substance: LORATADINE
  13. RAPAFLO [Concomitant]
     Active Substance: SILODOSIN
  14. NIASPAN [Concomitant]
     Active Substance: NIACIN
     Dosage: EXTENDED RELEASE
  15. CARVEDILOL. [Concomitant]
     Active Substance: CARVEDILOL
  16. CRESTOR [Concomitant]
     Active Substance: ROSUVASTATIN CALCIUM
  17. PRAMIPEXOLE HCL [Concomitant]
     Active Substance: PRAMIPEXOLE
  18. ALLOPURINOL. [Concomitant]
     Active Substance: ALLOPURINOL
  19. HYDROXYCHLOROQUINE [Concomitant]
     Active Substance: HYDROXYCHLOROQUINE
  20. SPIRONOLACTONE. [Concomitant]
     Active Substance: SPIRONOLACTONE
  21. CALCIUM + VITAMIN D [Concomitant]
     Active Substance: CALCIUM\VITAMIN D
     Dosage: 600 UNIT NOS
  22. PERCOCET [Concomitant]
     Active Substance: ACETAMINOPHEN\OXYCODONE HYDROCHLORIDE
     Dosage: 5-325 MG

REACTIONS (1)
  - Drug ineffective [Unknown]
